FAERS Safety Report 21494925 (Version 3)
Quarter: 2024Q1

REPORT INFORMATION
  Report Type: Spontaneous
  Country: US (occurrence: US)
  Receive Date: 20221022
  Receipt Date: 20240323
  Transmission Date: 20240409
  Serious: Yes (Other)
  Sender: FDA-Public Use
  Company Number: US-CELLTRION INC.-2022US015791

PATIENT

DRUGS (3)
  1. INFLECTRA [Suspect]
     Active Substance: INFLIXIMAB-DYYB
     Indication: Arthritis
     Dosage: 165 MG, CYCLIC (0,2,4, Q 8 WEEKS QUANTITY: 2 VIALS REFILLS: 10)
     Route: 065
     Dates: end: 202212
  2. INFLECTRA [Suspect]
     Active Substance: INFLIXIMAB-DYYB
     Indication: Rheumatoid arthritis
     Dosage: UNKNOWN
     Dates: end: 202212
  3. METHOTREXATE [Suspect]
     Active Substance: METHOTREXATE
     Indication: Arthritis
     Dosage: TAKING IT ONCE A WEEK (STOPPED IT 2 WEEKS BEFORE THE KNEE SURGERY AND ALSO HAD TO STOP IT BEFORE HER

REACTIONS (9)
  - Fall [Unknown]
  - Unevaluable event [Unknown]
  - Ligament sprain [Unknown]
  - Urinary tract infection [Unknown]
  - Back pain [Not Recovered/Not Resolved]
  - Pain [Unknown]
  - Liver disorder [Unknown]
  - Intentional dose omission [Unknown]
  - Overdose [Unknown]
